FAERS Safety Report 6898759-7 (Version None)
Quarter: 2010Q3

REPORT INFORMATION
  Report Type: 
  Country: None (occurrence: None)
  Receive Date: 20100802
  Receipt Date: 20071129
  Transmission Date: 20110219
  Serious: Yes (Hospitalization, Other)
  Sender: FDA-Public Use
  Company Number: US-PFIZER INC-2007101395

PATIENT
  Sex: Female
  Weight: 59.4 kg

DRUGS (5)
  1. LYRICA [Suspect]
     Indication: NEUROPATHY PERIPHERAL
     Route: 048
     Dates: start: 20070201
  2. PLAVIX [Concomitant]
  3. CARDIOVASCULAR SYSTEM DRUGS [Concomitant]
  4. ZOLOFT [Concomitant]
  5. ALL OTHER THERAPEUTIC PRODUCTS [Concomitant]

REACTIONS (7)
  - DIARRHOEA [None]
  - OEDEMA PERIPHERAL [None]
  - SKIN SWELLING [None]
  - SKIN TIGHTNESS [None]
  - VISION BLURRED [None]
  - VISUAL ACUITY REDUCED [None]
  - VOMITING [None]
